FAERS Safety Report 4737196-8 (Version None)
Quarter: 2005Q3

REPORT INFORMATION
  Report Type: 
  Country: None (occurrence: None)
  Receive Date: 20050808
  Receipt Date: 20050704
  Transmission Date: 20060218
  Serious: Yes (Hospitalization)
  Sender: FDA-Public Use
  Company Number: PHRM2005FR02041

PATIENT
  Age: 67 Year
  Sex: Female
  Weight: 55 kg

DRUGS (3)
  1. LEPONEX [Suspect]
     Indication: ACCIDENTAL EXPOSURE
     Dosage: 300 MG, ONCE/SINGLE
     Route: 048
     Dates: start: 20050704, end: 20050704
  2. SULPIRIDE [Concomitant]
     Indication: ANXIETY
     Dosage: 50 MG, TID
     Route: 048
     Dates: start: 20050701
  3. LEXOMIL [Concomitant]
     Indication: ANXIETY
     Dosage: UNK, UNK
     Route: 048
     Dates: start: 20050701

REACTIONS (6)
  - ACCIDENTAL EXPOSURE [None]
  - BLOOD PRESSURE DECREASED [None]
  - CONFUSIONAL STATE [None]
  - SEDATION [None]
  - SOMNOLENCE [None]
  - SPEECH DISORDER [None]
